FAERS Safety Report 7899469-X (Version None)
Quarter: 2011Q4

REPORT INFORMATION
  Report Type: 
  Country: None (occurrence: None)
  Receive Date: 20111107
  Receipt Date: 20110914
  Transmission Date: 20120403
  Serious: No
  Sender: FDA-Public Use
  Company Number: US-AMGEN-USASP2011047294

PATIENT
  Sex: Male

DRUGS (1)
  1. ENBREL [Suspect]
     Indication: RHEUMATOID ARTHRITIS
     Dosage: 50 MG, QWK
     Dates: start: 20110701, end: 20110801

REACTIONS (5)
  - JOINT SWELLING [None]
  - DERMATITIS ALLERGIC [None]
  - JOINT RANGE OF MOTION DECREASED [None]
  - RHEUMATOID ARTHRITIS [None]
  - TENDONITIS [None]
